FAERS Safety Report 4528150-X (Version None)
Quarter: 2004Q4

REPORT INFORMATION
  Report Type: 
  Country: None (occurrence: None)
  Receive Date: 20041215
  Receipt Date: 20041124
  Transmission Date: 20050328
  Serious: Yes (Hospitalization, Other)
  Sender: FDA-Public Use
  Company Number: JP-MERCK-0411USA04065

PATIENT
  Age: 76 Year
  Sex: Female

DRUGS (13)
  1. ZOCOR [Suspect]
     Indication: HYPERLIPIDAEMIA
     Route: 048
     Dates: start: 19980710, end: 20041123
  2. ASPIRIN [Concomitant]
     Indication: ANGINA PECTORIS
     Route: 065
  3. LASIX [Concomitant]
     Indication: CARDIAC FAILURE CONGESTIVE
     Route: 048
  4. RENIVACE [Concomitant]
     Indication: CARDIAC FAILURE CONGESTIVE
     Route: 048
  5. LANSOPRAZOLE [Concomitant]
     Indication: REFLUX OESOPHAGITIS
     Route: 048
  6. PROMAC [Concomitant]
     Indication: GASTRITIS
     Route: 048
  7. NITOROL-R [Concomitant]
     Indication: ANGINA PECTORIS
     Route: 048
  8. GASLON [Concomitant]
     Indication: GASTRITIS
     Route: 048
  9. SELBEX [Concomitant]
     Indication: GASTRITIS
     Route: 048
  10. METHIMAZOLE [Concomitant]
     Indication: HYPERTHYROIDISM
     Route: 048
  11. GLYCYRON [Concomitant]
     Indication: PRURITUS
     Route: 048
  12. CYANOCOBALAMIN [Concomitant]
     Indication: HYPOVITAMINOSIS
     Route: 048
  13. THYRADIN-S [Concomitant]
     Indication: HYPOTHYROIDISM
     Route: 048
     Dates: start: 20041109, end: 20041122

REACTIONS (2)
  - HYPOKALAEMIA [None]
  - RHABDOMYOLYSIS [None]
